FAERS Safety Report 21931409 (Version 1)
Quarter: 2023Q1

REPORT INFORMATION
  Report Type: Report from Study
  Country: CA (occurrence: CA)
  Receive Date: 20230131
  Receipt Date: 20230131
  Transmission Date: 20230417
  Serious: Yes (Hospitalization)
  Sender: FDA-Public Use
  Company Number: CA-OTSUKA-2022_053179

PATIENT
  Age: 35 Year
  Sex: Female

DRUGS (1)
  1. ARIPIPRAZOLE [Suspect]
     Active Substance: ARIPIPRAZOLE
     Indication: Product used for unknown indication
     Dosage: 300 MG, EVERY FOUR WEEKS
     Route: 030

REACTIONS (4)
  - Bipolar I disorder [Unknown]
  - Anxiety [Recovering/Resolving]
  - Underdose [Unknown]
  - Personal relationship issue [Unknown]

NARRATIVE: CASE EVENT DATE: 20221122
